FAERS Safety Report 10576451 (Version 1)
Quarter: 2014Q4

REPORT INFORMATION
  Report Type: Spontaneous
  Country: US (occurrence: None)
  Receive Date: 20141110
  Receipt Date: 20141110
  Transmission Date: 20150529
  Serious: Yes (Disabling)
  Sender: FDA-Public Use
  Company Number: None

PATIENT
  Age: 39 Year
  Sex: Female

DRUGS (1)
  1. EFFEXOR XR [Suspect]
     Active Substance: VENLAFAXINE HYDROCHLORIDE
     Indication: ANXIETY
     Route: 048

REACTIONS (7)
  - Feeding disorder [None]
  - Anxiety [None]
  - Hyperhidrosis [None]
  - Diarrhoea [None]
  - Dizziness [None]
  - Weight decreased [None]
  - Headache [None]

NARRATIVE: CASE EVENT DATE: 20141021
